FAERS Safety Report 7409237-0 (Version None)
Quarter: 2011Q2

REPORT INFORMATION
  Report Type: 
  Country: None (occurrence: None)
  Receive Date: 20110412
  Receipt Date: 20110407
  Transmission Date: 20111010
  Serious: Yes (Hospitalization)
  Sender: FDA-Public Use
  Company Number: A0886587A

PATIENT
  Age: 37 Year
  Sex: Male

DRUGS (7)
  1. AVANDIA [Suspect]
     Route: 048
     Dates: start: 20000101, end: 20081001
  2. COREG [Concomitant]
     Dates: end: 20081001
  3. LISINOPRIL [Concomitant]
  4. LIPITOR [Concomitant]
  5. GLUCOPHAGE [Concomitant]
  6. ZANAFLEX [Concomitant]
  7. TOPROL-XL [Concomitant]
     Dates: end: 20081001

REACTIONS (3)
  - MYOCARDIAL INFARCTION [None]
  - CORONARY ARTERY DISEASE [None]
  - ATRIOVENTRICULAR BLOCK SECOND DEGREE [None]
